FAERS Safety Report 4800055-6 (Version None)
Quarter: 2005Q4

REPORT INFORMATION
  Report Type: 
  Country: None (occurrence: None)
  Receive Date: 20051017
  Receipt Date: 20051006
  Transmission Date: 20060501
  Serious: Yes (Death, Other)
  Sender: FDA-Public Use
  Company Number: NSADSS2002026423

PATIENT
  Sex: Male

DRUGS (2)
  1. REMICADE [Suspect]
     Route: 041
     Dates: start: 20010320
  2. REMICADE [Suspect]
     Indication: RHEUMATOID ARTHRITIS
     Route: 041
     Dates: start: 20010320

REACTIONS (2)
  - LYMPHOMA [None]
  - MULTIPLE FRACTURES [None]
